FAERS Safety Report 8724229 (Version 3)
Quarter: 2012Q4

REPORT INFORMATION
  Report Type: Report from Study
  Country: US (occurrence: US)
  Receive Date: 20120815
  Receipt Date: 20120910
  Transmission Date: 20130627
  Serious: Yes (Death, Life-Threatening, Hospitalization, Other)
  Sender: FDA-Public Use
  Company Number: US-CELGENEUS-163-21880-12070846

PATIENT
  Age: 63 None
  Sex: Male
  Weight: 103.1 kg

DRUGS (23)
  1. REVLIMID [Suspect]
     Indication: MULTIPLE MYELOMA
     Dosage: 10 Milligram
     Route: 048
     Dates: start: 20120424, end: 20120602
  2. DEXAMETHASONE [Suspect]
     Indication: MULTIPLE MYELOMA
     Dosage: 40 Milligram
     Route: 048
     Dates: start: 20120424, end: 20120602
  3. ASPIRIN [Concomitant]
     Indication: DRUG USE FOR UNKNOWN INDICATION
     Dosage: 81 Milligram
     Route: 065
  4. CHOLECALCIFEROL [Concomitant]
     Indication: DRUG USE FOR UNKNOWN INDICATION
     Route: 065
  5. CLINDAMYCIN [Concomitant]
     Indication: DRUG USE FOR UNKNOWN INDICATION
     Route: 065
  6. FLUCONAZOLE [Concomitant]
     Indication: DRUG USE FOR UNKNOWN INDICATION
     Route: 065
  7. LEVALBUTEROL [Concomitant]
     Indication: DRUG USE FOR UNKNOWN INDICATION
     Route: 065
  8. LYRICA [Concomitant]
     Indication: DRUG USE FOR UNKNOWN INDICATION
     Route: 065
  9. MEPRON [Concomitant]
     Indication: DRUG USE FOR UNKNOWN INDICATION
     Route: 065
  10. METFORMIN [Concomitant]
     Indication: ATRIAL FIBRILLATION
     Route: 065
  11. METOPROLOL [Concomitant]
     Indication: ATRIAL FIBRILLATION
     Dosage: 75 Milligram
     Route: 065
  12. METOPROLOL [Concomitant]
     Dosage: 20 Milligram
     Route: 041
  13. OMEPRAZOLE [Concomitant]
     Indication: DRUG USE FOR UNKNOWN INDICATION
     Route: 065
  14. ROSUVASTATIN [Concomitant]
     Indication: DRUG USE FOR UNKNOWN INDICATION
     Dosage: 10 Milligram
     Route: 065
  15. SUCRALFATE [Concomitant]
     Indication: DRUG USE FOR UNKNOWN INDICATION
     Route: 065
  16. TRAMADOL [Concomitant]
     Indication: DRUG USE FOR UNKNOWN INDICATION
     Route: 065
  17. VALACYCLOVIR [Concomitant]
     Indication: DRUG USE FOR UNKNOWN INDICATION
     Route: 065
  18. XYLOXYLIN [Concomitant]
     Indication: DRUG USE FOR UNKNOWN INDICATION
     Route: 065
  19. INSULIN [Concomitant]
     Indication: DRUG USE FOR UNKNOWN INDICATION
     Dosage: sliding scale
     Route: 065
  20. D5W [Concomitant]
     Indication: DRUG USE FOR UNKNOWN INDICATION
     Dosage: 1008 milliliter
     Route: 065
  21. PANTOPRAZOLE [Concomitant]
     Indication: PROPHYLAXIS
     Route: 065
  22. MORPHINE [Concomitant]
     Indication: PAIN
     Dosage: 1 Milligram
     Route: 065
  23. LACTULOSE [Concomitant]
     Indication: CONSTIPATION
     Dosage: 60 milliliter
     Route: 048

REACTIONS (14)
  - Plasma cell myeloma [Fatal]
  - Depressed level of consciousness [Unknown]
  - Metabolic encephalopathy [Unknown]
  - Hepatic encephalopathy [Recovered/Resolved with Sequelae]
  - Ammonia increased [Recovered/Resolved]
  - Metabolic acidosis [Not Recovered/Not Resolved]
  - Blood calcium increased [Recovered/Resolved]
  - Mental status changes [Recovered/Resolved]
  - Respiratory failure [Not Recovered/Not Resolved]
  - Hallucination [Recovered/Resolved with Sequelae]
  - Renal failure acute [Not Recovered/Not Resolved]
  - Thrombocytopenia [Not Recovered/Not Resolved]
  - Epistaxis [Recovered/Resolved with Sequelae]
  - Hypotension [Recovered/Resolved with Sequelae]
